FAERS Safety Report 4701561-5 (Version None)
Quarter: 2005Q2

REPORT INFORMATION
  Report Type: 
  Country: None (occurrence: None)
  Receive Date: 20050628
  Receipt Date: 20050623
  Transmission Date: 20051028
  Serious: Yes (Life-Threatening)
  Sender: FDA-Public Use
  Company Number: 2005PK01088

PATIENT
  Age: 59 Year
  Sex: Female

DRUGS (23)
  1. ANTRA 20 [Interacting]
     Route: 048
  2. FRAXIPARINE [Interacting]
     Route: 058
     Dates: start: 20050203, end: 20050220
  3. FRAXIPARINE [Suspect]
     Route: 058
     Dates: start: 20050221, end: 20050313
  4. SINTROM 1 MITIS [Interacting]
     Route: 048
  5. ASPIRIN [Interacting]
     Route: 048
  6. CIPRALEX [Suspect]
     Route: 048
  7. ZOCOR [Interacting]
     Route: 048
  8. XENICAL [Interacting]
     Route: 048
  9. DAFLON [Concomitant]
     Route: 048
  10. XANAX [Concomitant]
     Route: 048
  11. DETROL [Concomitant]
     Route: 048
  12. CLONAZEPAM [Concomitant]
     Route: 048
  13. BENERVA [Concomitant]
     Route: 048
  14. BECOZYME C [Concomitant]
     Route: 048
  15. MADOPAR [Concomitant]
     Route: 048
  16. VITAMINE B6 [Concomitant]
     Route: 048
  17. ROHYPNOL [Concomitant]
     Route: 048
  18. DHEA [Concomitant]
     Route: 048
  19. EFFORTIL PLUS [Concomitant]
     Route: 048
  20. DUSPATALIN [Concomitant]
     Route: 048
  21. TILUR [Concomitant]
     Route: 048
  22. KAPANOL [Concomitant]
     Route: 048
  23. MORPHINE [Concomitant]
     Route: 048

REACTIONS (13)
  - CARDIAC TAMPONADE [None]
  - CARDIOGENIC SHOCK [None]
  - COAGULOPATHY [None]
  - DRUG INTERACTION [None]
  - ELECTROMECHANICAL DISSOCIATION [None]
  - INTESTINAL ISCHAEMIA [None]
  - ISCHAEMIC HEPATITIS [None]
  - LUNG INFILTRATION [None]
  - MULTI-ORGAN FAILURE [None]
  - PERICARDIAL HAEMORRHAGE [None]
  - RENAL FAILURE ACUTE [None]
  - SEROMA [None]
  - SKIN GRAFT [None]
